FAERS Safety Report 25144345 (Version 6)
Quarter: 2025Q3

REPORT INFORMATION
  Report Type: Report from Study
  Country: US (occurrence: US)
  Receive Date: 20250401
  Receipt Date: 20250912
  Transmission Date: 20251021
  Serious: Yes (Other)
  Sender: SUNOVION
  Company Number: US-SUMITOMO PHARMA SWITZERLAND GMBH-2025SPA002221

PATIENT
  Age: 80 Year
  Sex: Male

DRUGS (14)
  1. ORGOVYX [Suspect]
     Active Substance: RELUGOLIX
     Indication: Prostate cancer
     Dosage: 120 MG, QD
     Route: 048
     Dates: start: 20250220
  2. Alfalfa natural [Concomitant]
     Route: 048
  3. ASPIRIN [Concomitant]
     Active Substance: ASPIRIN
     Route: 048
  4. VITAMIN B COMPLEX [Concomitant]
     Active Substance: CYANOCOBALAMIN\DEXPANTHENOL\NIACINAMIDE\PYRIDOXINE HYDROCHLORIDE\RIBOFLAVIN 5^-PHOSPHATE SODIUM\THIA
     Route: 048
  5. COENZYME Q10 [Concomitant]
     Active Substance: DIETARY SUPPLEMENT\UBIDECARENONE
     Route: 048
  6. FISH OIL\OMEGA-3 FATTY ACIDS [Concomitant]
     Active Substance: FISH OIL\OMEGA-3 FATTY ACIDS
     Route: 048
  7. VITAMINS [Concomitant]
     Active Substance: VITAMINS
     Route: 048
  8. ELIQUIS [Concomitant]
     Active Substance: APIXABAN
     Route: 048
  9. Glucosamine Chondroitin Advanced [Concomitant]
     Route: 048
  10. LISINOPRIL [Concomitant]
     Active Substance: LISINOPRIL
     Route: 048
  11. TAMSULOSIN HYDROCHLORIDE [Concomitant]
     Active Substance: TAMSULOSIN HYDROCHLORIDE
     Route: 048
  12. VENLAFAXINE HCL [Concomitant]
     Active Substance: VENLAFAXINE HYDROCHLORIDE
     Route: 048
  13. XTANDI [Concomitant]
     Active Substance: ENZALUTAMIDE
     Route: 048
  14. GLUCOSAMINE [Concomitant]
     Active Substance: GLUCOSAMINE

REACTIONS (14)
  - Dementia [Unknown]
  - Abdominal distension [Unknown]
  - Heart rate increased [Unknown]
  - Epistaxis [Unknown]
  - Ear infection [Unknown]
  - Pruritus [Recovered/Resolved]
  - Hypersomnia [Unknown]
  - Lethargy [Unknown]
  - Limb discomfort [Unknown]
  - Night sweats [Unknown]
  - Hot flush [Unknown]
  - Fatigue [Unknown]
  - Diarrhoea [Unknown]
  - Incorrect dose administered [Recovered/Resolved]
